FAERS Safety Report 25389856 (Version 1)
Quarter: 2025Q2

REPORT INFORMATION
  Report Type: Spontaneous
  Country: US (occurrence: None)
  Receive Date: 20250602
  Receipt Date: 20250602
  Transmission Date: 20250717
  Serious: Yes (Other)
  Sender: FDA-CTU
  Company Number: None

PATIENT
  Age: 19 Year
  Sex: Female
  Weight: 48.15 kg

DRUGS (1)
  1. MEDROXYPROGESTERONE [Suspect]
     Active Substance: MEDROXYPROGESTERONE
     Indication: Contraception

REACTIONS (8)
  - Fatigue [None]
  - Acne [None]
  - Alopecia [None]
  - Mood swings [None]
  - Haemorrhage [None]
  - Anaemia [None]
  - Thyroid disorder [None]
  - Fatigue [None]

NARRATIVE: CASE EVENT DATE: 20241101
